FAERS Safety Report 5891012-X (Version None)
Quarter: 2008Q3

REPORT INFORMATION
  Report Type: 
  Country: None (occurrence: None)
  Receive Date: 20080918
  Receipt Date: 20080918
  Transmission Date: 20090109
  Serious: Yes (Death)
  Sender: FDA-Public Use
  Company Number: None

PATIENT
  Sex: Male
  Weight: 117.028 kg

DRUGS (2)
  1. SIMVASTATIN [Suspect]
  2. AMIODARONE HCL [Concomitant]

REACTIONS (2)
  - RHABDOMYOLYSIS [None]
  - SUDDEN DEATH [None]
